FAERS Safety Report 18748355 (Version 2)
Quarter: 2021Q1

REPORT INFORMATION
  Report Type: Spontaneous
  Country: US (occurrence: US)
  Receive Date: 20210115
  Receipt Date: 20210225
  Transmission Date: 20210419
  Serious: No
  Sender: FDA-Public Use
  Company Number: US-ASTRAZENECA-2020SF75982

PATIENT
  Sex: Male

DRUGS (1)
  1. BYDUREON [Suspect]
     Active Substance: EXENATIDE
     Indication: BLOOD GLUCOSE ABNORMAL
     Route: 058

REACTIONS (10)
  - Dizziness [Unknown]
  - Physical product label issue [Unknown]
  - Blood glucose increased [Unknown]
  - Feeling drunk [Unknown]
  - Balance disorder [Unknown]
  - Device issue [Unknown]
  - Product packaging quantity issue [Unknown]
  - Liquid product physical issue [Unknown]
  - Hypertension [Unknown]
  - Headache [Unknown]
